FAERS Safety Report 7139445-8 (Version None)
Quarter: 2010Q4

REPORT INFORMATION
  Report Type: 
  Country: None (occurrence: None)
  Receive Date: 20101206
  Receipt Date: 20101130
  Transmission Date: 20110411
  Serious: Yes (Hospitalization)
  Sender: FDA-Public Use
  Company Number: DE-PFIZER INC-2010160924

PATIENT
  Age: 76 Year
  Sex: Male

DRUGS (7)
  1. SUTENT [Suspect]
     Indication: RENAL CELL CARCINOMA
     Dosage: 50 MG, 1X/DAY, ONCE DAILY, 4 WEEKS ON, TWO WEEKS OFF
     Route: 048
     Dates: start: 20100921
  2. EUTHYROX [Concomitant]
     Dosage: 1 PILL, 1X/DAY
  3. EZETROL [Concomitant]
     Dosage: 10 MG, 1X/DAY
     Dates: end: 20101001
  4. FINASTERIDE [Concomitant]
     Dosage: 5 MG, 1X/DAY
  5. TAMSULOSIN HYDROCHLORIDE [Concomitant]
     Dosage: 0.4 MG, 1X/DAY
  6. KARVEA [Concomitant]
     Dosage: 300 MG, 1X/DAY
  7. TORASEMIDE [Concomitant]
     Dosage: 10 MG, 1X/DAY
     Dates: end: 20101001

REACTIONS (1)
  - SYNCOPE [None]
